FAERS Safety Report 14917755 (Version 1)
Quarter: 2018Q2

REPORT INFORMATION
  Report Type: Spontaneous
  Country: US (occurrence: US)
  Receive Date: 20180521
  Receipt Date: 20180521
  Transmission Date: 20180711
  Serious: Yes (Other)
  Sender: FDA-Public Use
  Company Number: US-009507513-1805USA005360

PATIENT
  Sex: Female

DRUGS (1)
  1. IMPLANON [Suspect]
     Active Substance: ETONOGESTREL
     Dosage: 1 IMPLANT , UNK
     Route: 059
     Dates: start: 201505

REACTIONS (4)
  - Complication associated with device [Unknown]
  - Pregnancy with implant contraceptive [Unknown]
  - Device dislocation [Unknown]
  - Unintended pregnancy [Unknown]
